FAERS Safety Report 5740339-0 (Version None)
Quarter: 2008Q2

REPORT INFORMATION
  Report Type: 
  Country: None (occurrence: None)
  Receive Date: 20080516
  Receipt Date: 20080506
  Transmission Date: 20081010
  Serious: Yes (Death, Life-Threatening)
  Sender: FDA-Public Use
  Company Number: HK-GENENTECH-260981

PATIENT

DRUGS (1)
  1. AVASTIN [Suspect]
     Indication: COLON CANCER

REACTIONS (3)
  - DEATH [None]
  - GASTROINTESTINAL PERFORATION [None]
  - PULMONARY EMBOLISM [None]
